FAERS Safety Report 19990689 (Version 1)
Quarter: 2021Q4

REPORT INFORMATION
  Report Type: Spontaneous
  Country: DE (occurrence: DE)
  Receive Date: 20211025
  Receipt Date: 20211025
  Transmission Date: 20220303
  Serious: Yes (Other)
  Sender: FDA-Public Use
  Company Number: DE-TEVA-2021-DE-1967793

PATIENT
  Sex: Female

DRUGS (1)
  1. SULFAMETHOXAZOLE\TRIMETHOPRIM [Suspect]
     Active Substance: SULFAMETHOXAZOLE\TRIMETHOPRIM
     Dosage: 1 DF CONTAINS: 800 MG SULFAMETHOXAZOLE AND 160 MG TRIMETHOPRIM
     Route: 048

REACTIONS (3)
  - Choking [Unknown]
  - Product use complaint [Unknown]
  - Product size issue [Unknown]

NARRATIVE: CASE EVENT DATE: 20210101
